FAERS Safety Report 7693395 (Version 9)
Quarter: 2013Q1

REPORT INFORMATION
  Report Type: Spontaneous
  Country: US (occurrence: US)
  Receive Date: 20101206
  Receipt Date: 20130129
  Transmission Date: 20140127
  Serious: Yes (Hospitalization, Other)
  Sender: FDA-Public Use
  Company Number: US-ELI_LILLY_AND_COMPANY-US201011006486

PATIENT
  Age: 80 None
  Sex: Female

DRUGS (5)
  1. ZYPREXA ZYDIS [Suspect]
     Dosage: 10 MG, EACH EVENING
     Route: 048
     Dates: start: 20010815, end: 20010822
  2. ZYPREXA [Suspect]
     Dosage: 10 MG, DAILY (1/D)
     Dates: start: 20010822, end: 20101115
  3. ZYPREXA [Suspect]
     Dosage: UNK
     Route: 065
  4. DOPAMINE [Concomitant]
  5. SEROTONIN [Concomitant]

REACTIONS (55)
  - Suicidal ideation [Unknown]
  - Renal disorder [Unknown]
  - Schizophrenia, undifferentiated type [Unknown]
  - Occult blood positive [Unknown]
  - White blood cells urine positive [Unknown]
  - Arthralgia [Unknown]
  - Ear pain [Unknown]
  - Crepitations [Unknown]
  - Pneumonia [Not Recovered/Not Resolved]
  - Oral pain [Unknown]
  - Hyperventilation [Unknown]
  - Coordination abnormal [Unknown]
  - Disturbance in attention [Unknown]
  - Dysarthria [Unknown]
  - Oropharyngeal pain [Recovered/Resolved]
  - Muscle rigidity [Unknown]
  - Rhinorrhoea [Unknown]
  - Dysphonia [Unknown]
  - Aphasia [Unknown]
  - Diplopia [Unknown]
  - Confusional state [Unknown]
  - Road traffic accident [Unknown]
  - Nasal congestion [Unknown]
  - Wrist fracture [Unknown]
  - Joint dislocation [Unknown]
  - Cataract [Unknown]
  - Joint swelling [Unknown]
  - Dysphemia [Unknown]
  - Colon neoplasm [Unknown]
  - Psychiatric symptom [Unknown]
  - Choking [Unknown]
  - Abdominal pain [Unknown]
  - Abdominal pain upper [Unknown]
  - Diarrhoea [Unknown]
  - Feeling abnormal [Not Recovered/Not Resolved]
  - Eye disorder [Unknown]
  - Personality change [Unknown]
  - Headache [Unknown]
  - Amnesia [Unknown]
  - Insomnia [Not Recovered/Not Resolved]
  - Back pain [Unknown]
  - Chest pain [Unknown]
  - Nuchal rigidity [Unknown]
  - Tremor [Unknown]
  - Cough [Unknown]
  - Crying [Unknown]
  - Ageusia [Unknown]
  - Oedema peripheral [Unknown]
  - Dyskinesia [Unknown]
  - Constipation [Unknown]
  - Dry mouth [Unknown]
  - Dizziness [Unknown]
  - Increased appetite [Unknown]
  - Weight increased [Unknown]
  - Drug hypersensitivity [Unknown]
